FAERS Safety Report 11236094 (Version 1)
Quarter: 2015Q3

REPORT INFORMATION
  Report Type: Spontaneous
  Country: US (occurrence: US)
  Receive Date: 20150702
  Receipt Date: 20150702
  Transmission Date: 20151125
  Serious: No
  Sender: FDA-Public Use
  Company Number: US-TAKEDA-2015TUS003737

PATIENT
  Sex: Female
  Weight: 124.26 kg

DRUGS (2)
  1. CONTRAVE [Suspect]
     Active Substance: BUPROPION HYDROCHLORIDE\NALTREXONE HYDROCHLORIDE
     Indication: OVERWEIGHT
     Dosage: ONE TABLET DAILY IN EVENING
     Route: 048
     Dates: start: 20150311
  2. NEURONTIN [Concomitant]
     Active Substance: GABAPENTIN
     Indication: ARTHRITIS
     Dosage: 100 MG, QD
     Route: 048

REACTIONS (3)
  - Somnolence [Unknown]
  - Inappropriate schedule of drug administration [Unknown]
  - Fatigue [Unknown]
